FAERS Safety Report 20827820 (Version 1)
Quarter: 2022Q2

REPORT INFORMATION
  Report Type: Spontaneous
  Country: US (occurrence: None)
  Receive Date: 20220513
  Receipt Date: 20220513
  Transmission Date: 20220720
  Serious: Yes (Other)
  Sender: FDA-Public Use
  Company Number: None

PATIENT
  Age: 39 Year
  Sex: Female
  Weight: 81 kg

DRUGS (5)
  1. ZONISAMIDE [Suspect]
     Active Substance: ZONISAMIDE
     Dates: start: 20210414, end: 20210429
  2. GABAPENTIN [Concomitant]
     Active Substance: GABAPENTIN
  3. DILTIAZEM [Concomitant]
     Active Substance: DILTIAZEM
  4. METHOCARBAMOL [Concomitant]
     Active Substance: METHOCARBAMOL
  5. TYLENOL WITH CODEINE [Concomitant]
     Active Substance: ACETAMINOPHEN\CODEINE PHOSPHATE

REACTIONS (5)
  - Eye inflammation [None]
  - Ocular hyperaemia [None]
  - Eye pain [None]
  - Photophobia [None]
  - Recalled product administered [None]

NARRATIVE: CASE EVENT DATE: 20210429
